FAERS Safety Report 22130086 (Version 3)
Quarter: 2023Q2

REPORT INFORMATION
  Report Type: Spontaneous
  Country: FR (occurrence: FR)
  Receive Date: 20230323
  Receipt Date: 20230407
  Transmission Date: 20230722
  Serious: Yes (Death, Life-Threatening, Hospitalization, Other)
  Sender: FDA-Public Use
  Company Number: FR-TAKEDA-2023TUS027407

PATIENT
  Age: 74 Year
  Sex: Male

DRUGS (145)
  1. LANSOPRAZOLE [Suspect]
     Active Substance: LANSOPRAZOLE
     Indication: Gastrointestinal disorder prophylaxis
     Dosage: 3 MG, QD
     Route: 048
     Dates: start: 20200210
  2. LANSOPRAZOLE [Suspect]
     Active Substance: LANSOPRAZOLE
     Indication: Prophylaxis
     Dosage: 78 MG, QD
     Route: 048
     Dates: start: 20200710
  3. LANSOPRAZOLE [Suspect]
     Active Substance: LANSOPRAZOLE
     Dosage: 3 MG, QD
     Route: 048
     Dates: start: 20200710, end: 20200805
  4. LANSOPRAZOLE [Suspect]
     Active Substance: LANSOPRAZOLE
     Dosage: 30 MG, QD
     Route: 048
     Dates: start: 20200710, end: 20200805
  5. LANSOPRAZOLE [Suspect]
     Active Substance: LANSOPRAZOLE
     Dosage: 30 MG, QD
     Route: 048
  6. LANSOPRAZOLE [Suspect]
     Active Substance: LANSOPRAZOLE
     Dosage: 78 MG, QD
     Route: 048
     Dates: start: 20200710
  7. LANSOPRAZOLE [Suspect]
     Active Substance: LANSOPRAZOLE
     Dosage: 78 MG
     Route: 048
     Dates: end: 20200805
  8. LANSOPRAZOLE [Suspect]
     Active Substance: LANSOPRAZOLE
     Dosage: 78 MG, QD
     Route: 048
  9. LANSOPRAZOLE [Suspect]
     Active Substance: LANSOPRAZOLE
     Dosage: 78 MG
     Route: 048
     Dates: start: 20200710
  10. LANSOPRAZOLE [Suspect]
     Active Substance: LANSOPRAZOLE
     Dosage: 78 MG
     Route: 048
     Dates: start: 20200805
  11. LOPERAMIDE HYDROCHLORIDE [Suspect]
     Active Substance: LOPERAMIDE HYDROCHLORIDE
     Indication: Diarrhoea
     Dosage: 4 MG, QD
     Route: 048
     Dates: start: 20200804, end: 20200804
  12. LOPERAMIDE HYDROCHLORIDE [Suspect]
     Active Substance: LOPERAMIDE HYDROCHLORIDE
     Dosage: 4 MG
     Route: 065
  13. LOPERAMIDE HYDROCHLORIDE [Suspect]
     Active Substance: LOPERAMIDE HYDROCHLORIDE
     Dosage: UNK
     Route: 065
  14. FUROSEMIDE [Suspect]
     Active Substance: FUROSEMIDE
     Indication: Product used for unknown indication
     Dosage: UNK
     Route: 065
  15. SERTRALINE [Suspect]
     Active Substance: SERTRALINE HYDROCHLORIDE
     Indication: Depression
     Dosage: 746.35 MG
     Route: 048
     Dates: start: 20200726, end: 20200810
  16. SERTRALINE [Suspect]
     Active Substance: SERTRALINE HYDROCHLORIDE
     Indication: Pneumonia
     Dosage: 50 MG, QD
     Route: 048
  17. SERTRALINE [Suspect]
     Active Substance: SERTRALINE HYDROCHLORIDE
     Dosage: 50 MG, QD
     Route: 048
     Dates: start: 20200726, end: 20200810
  18. SERTRALINE [Suspect]
     Active Substance: SERTRALINE HYDROCHLORIDE
     Dosage: 746.35 MG
     Route: 048
  19. SERTRALINE [Suspect]
     Active Substance: SERTRALINE HYDROCHLORIDE
     Dosage: 9 IU, QD (3 INTERNATIONAL UNIT, TID)
     Route: 042
     Dates: start: 20200708, end: 20200715
  20. ACETAMINOPHEN [Suspect]
     Active Substance: ACETAMINOPHEN
     Indication: Pyrexia
     Dosage: 1 G
     Route: 042
     Dates: start: 20200719, end: 20200730
  21. PIPERACILLIN AND TAZOBACTAM [Suspect]
     Active Substance: PIPERACILLIN SODIUM\TAZOBACTAM SODIUM
     Indication: Pneumonia
     Dosage: 12 G, QD (4 GRAM, TID)
     Route: 042
     Dates: start: 20200723, end: 20200730
  22. PIPERACILLIN AND TAZOBACTAM [Suspect]
     Active Substance: PIPERACILLIN SODIUM\TAZOBACTAM SODIUM
     Indication: Tracheobronchitis
     Dosage: 84 G
     Route: 042
  23. PIPERACILLIN AND TAZOBACTAM [Suspect]
     Active Substance: PIPERACILLIN SODIUM\TAZOBACTAM SODIUM
     Dosage: 12 G, QD
     Route: 042
     Dates: start: 20200723, end: 20200730
  24. LACTULOSE [Suspect]
     Active Substance: LACTULOSE
     Indication: Constipation
     Dosage: 80 G
     Route: 048
  25. LACTULOSE [Suspect]
     Active Substance: LACTULOSE
     Dosage: 80 G
     Route: 048
  26. LACTULOSE [Suspect]
     Active Substance: LACTULOSE
     Dosage: 80 G
     Route: 048
  27. LACTULOSE [Suspect]
     Active Substance: LACTULOSE
     Dosage: 40 G, QD
     Route: 048
     Dates: start: 20200713, end: 20200715
  28. LACTULOSE [Suspect]
     Active Substance: LACTULOSE
     Dosage: 80 G
     Route: 048
  29. LACTULOSE [Suspect]
     Active Substance: LACTULOSE
     Dosage: 80 G
     Route: 048
  30. LACTULOSE [Suspect]
     Active Substance: LACTULOSE
     Dosage: 40 G, QD (20 GRAM, BID)
     Route: 048
     Dates: start: 20200713, end: 20200715
  31. LACTULOSE [Suspect]
     Active Substance: LACTULOSE
     Dosage: 40 G, QD
     Route: 048
  32. LACTULOSE [Suspect]
     Active Substance: LACTULOSE
     Dosage: 80 G
     Route: 048
  33. LACTULOSE [Suspect]
     Active Substance: LACTULOSE
     Dosage: 80 G
     Route: 048
  34. OXAZEPAM [Suspect]
     Active Substance: OXAZEPAM
     Indication: Anxiolytic therapy
     Dosage: 20 MG, QD (20 MILLIGRAM)
     Route: 048
  35. OXAZEPAM [Suspect]
     Active Substance: OXAZEPAM
     Dosage: 10 MG, QD
     Route: 048
     Dates: start: 20200802, end: 20200804
  36. OXAZEPAM [Suspect]
     Active Substance: OXAZEPAM
     Dosage: 10 MG, QD
     Route: 048
  37. DUPHALAC [Suspect]
     Active Substance: LACTULOSE
     Indication: Constipation
     Dosage: 80 MG
     Route: 048
  38. DUPHALAC [Suspect]
     Active Substance: LACTULOSE
     Dosage: 40 MG, QD
     Route: 048
  39. DUPHALAC [Suspect]
     Active Substance: LACTULOSE
     Dosage: 40 G, QD
     Route: 048
     Dates: start: 20200713, end: 20200715
  40. DUPHALAC [Suspect]
     Active Substance: LACTULOSE
     Dosage: 40 G, QD (20 GRAM, BID)
     Route: 048
     Dates: start: 20200713, end: 20200715
  41. DUPHALAC [Suspect]
     Active Substance: LACTULOSE
     Dosage: 80 G
     Route: 048
  42. DIAMOX SEQUELS [Suspect]
     Active Substance: ACETAZOLAMIDE
     Indication: Product used for unknown indication
     Dosage: UNK
     Route: 058
  43. FENOTEROL [Suspect]
     Active Substance: FENOTEROL
     Indication: Inhalation therapy
     Dosage: 1.5 MG, QD (0.5 MILLIGRAM, TID)
     Dates: start: 20200730, end: 20200803
  44. FENOTEROL [Suspect]
     Active Substance: FENOTEROL
     Dosage: 6 MG
  45. FENOTEROL [Suspect]
     Active Substance: FENOTEROL
     Dosage: 4.5 MG, QD (1.5 MILLIGRAM, TID)
     Dates: start: 20200730, end: 20200803
  46. FENOTEROL [Suspect]
     Active Substance: FENOTEROL
     Dosage: 13.5 MG, QD (4.5 MILLIGRAM, TID)
     Dates: start: 20200730, end: 20200803
  47. CISATRACURIUM BESYLATE [Suspect]
     Active Substance: CISATRACURIUM BESYLATE
     Indication: Endotracheal intubation
     Dosage: 20 MG, QD
     Route: 042
     Dates: start: 20200715, end: 20200715
  48. CISATRACURIUM BESYLATE [Suspect]
     Active Substance: CISATRACURIUM BESYLATE
     Indication: Neuromuscular blocking therapy
  49. RACECADOTRIL [Suspect]
     Active Substance: RACECADOTRIL
     Indication: Product used for unknown indication
     Dosage: 100 MG
     Route: 058
     Dates: start: 20200727, end: 20200804
  50. METHYLPREDNISOLONE SODIUM SUCCINATE [Suspect]
     Active Substance: METHYLPREDNISOLONE SODIUM SUCCINATE
     Indication: Acute respiratory distress syndrome
     Dosage: 1800 MG, Q2W
     Route: 042
  51. CALCIUM GLUCONATE [Suspect]
     Active Substance: CALCIUM GLUCONATE
     Indication: Product used for unknown indication
     Dosage: UNK
     Route: 065
  52. CALCIUM PHOSPHATE, DIBASIC, ANHYDROUS\MAGNESIUM GLYCEROPHOSPHATE\PHOSP [Suspect]
     Active Substance: CALCIUM PHOSPHATE, DIBASIC, ANHYDROUS\MAGNESIUM GLYCEROPHOSPHATE\PHOSPHORIC ACID\SODIUM PHOSPHATE, D
     Indication: Pneumonia
     Dosage: 6 G, QD
     Route: 042
     Dates: start: 20200708, end: 20200715
  53. CALCIUM PHOSPHATE, DIBASIC, ANHYDROUS\MAGNESIUM GLYCEROPHOSPHATE\PHOSP [Suspect]
     Active Substance: CALCIUM PHOSPHATE, DIBASIC, ANHYDROUS\MAGNESIUM GLYCEROPHOSPHATE\PHOSPHORIC ACID\SODIUM PHOSPHATE, D
     Dosage: UNK
     Route: 065
  54. CALCIUM PHOSPHATE, DIBASIC, ANHYDROUS\MAGNESIUM GLYCEROPHOSPHATE\PHOSP [Suspect]
     Active Substance: CALCIUM PHOSPHATE, DIBASIC, ANHYDROUS\MAGNESIUM GLYCEROPHOSPHATE\PHOSPHORIC ACID\SODIUM PHOSPHATE, D
     Dosage: 40 G
     Route: 065
  55. THIAMINE HYDROCHLORIDE [Suspect]
     Active Substance: THIAMINE HYDROCHLORIDE
     Indication: Product used for unknown indication
     Dosage: UNK
     Route: 065
  56. RACECADOTRIL [Suspect]
     Active Substance: RACECADOTRIL
     Indication: Product used for unknown indication
     Dosage: UNK
     Route: 065
  57. POTASSIUM GLUCONATE [Suspect]
     Active Substance: POTASSIUM GLUCONATE
     Indication: Product used for unknown indication
     Dosage: UNK
     Route: 065
  58. SPIRAMYCIN [Suspect]
     Active Substance: SPIRAMYCIN
     Indication: Pneumonia
     Dosage: 9000000 IU, QD (3000000 INTERNATIONAL UNIT, TID)
     Route: 042
     Dates: start: 20200708, end: 20200715
  59. SPIRAMYCIN [Suspect]
     Active Substance: SPIRAMYCIN
     Dosage: 63 IU
     Route: 042
  60. IPRATROPIUM [Suspect]
     Active Substance: IPRATROPIUM
     Indication: Inhalation therapy
     Dosage: 1.5 MG, QD (0.5 MILLIGRAM, TID)
     Dates: start: 20200730, end: 20200803
  61. IPRATROPIUM [Suspect]
     Active Substance: IPRATROPIUM
     Dosage: 4.5 MG, QD (1.5 MILLIGRAM)
     Dates: start: 20200730, end: 20200803
  62. IPRATROPIUM [Suspect]
     Active Substance: IPRATROPIUM
     Dosage: 1.5 MG, QD
  63. IPRATROPIUM [Suspect]
     Active Substance: IPRATROPIUM
     Dosage: 4.5 MG, QD (1.5 MILLIGRAM, TID)
     Dates: start: 20200730, end: 20200803
  64. IPRATROPIUM [Suspect]
     Active Substance: IPRATROPIUM
     Dosage: 4.5 MG, QD (1.5 MILLIGRAM)
  65. IPRATROPIUM [Suspect]
     Active Substance: IPRATROPIUM
     Dosage: 6 MG
  66. IPRATROPIUM [Suspect]
     Active Substance: IPRATROPIUM
     Dosage: 6 MG
  67. IPRATROPIUM [Suspect]
     Active Substance: IPRATROPIUM
     Dosage: 6 MILLIGRAM
     Route: 065
  68. IPRATROPIUM [Suspect]
     Active Substance: IPRATROPIUM
     Dosage: 13.5 MG, QD (4.5 MILLIGRAM, TID)
     Dates: start: 20200730, end: 20200803
  69. IPRATROPIUM [Suspect]
     Active Substance: IPRATROPIUM
     Dosage: 13.5 MG, QD (4.5 MILLIGRAM, TID)
  70. NIMBEX [Suspect]
     Active Substance: CISATRACURIUM BESYLATE
     Indication: Neuromuscular blocking therapy
     Dosage: 20 MG, QD
     Route: 042
     Dates: start: 20200715, end: 20200715
  71. NIMBEX [Suspect]
     Active Substance: CISATRACURIUM BESYLATE
     Indication: Endotracheal intubation
  72. URAPIDIL [Suspect]
     Active Substance: URAPIDIL
     Indication: Hypertension
     Dosage: 5 MG, QH
     Route: 042
     Dates: start: 20200709, end: 20200709
  73. MORPHINE HYDROCHLORIDE [Suspect]
     Active Substance: MORPHINE HYDROCHLORIDE
     Indication: Product used for unknown indication
     Dosage: UNK
     Route: 065
  74. HUMALOG [Suspect]
     Active Substance: INSULIN LISPRO
     Indication: Product used for unknown indication
     Dosage: 1 INTERNATIONAL UNIT
     Route: 042
     Dates: start: 20200709, end: 20200730
  75. ISUPREL [Suspect]
     Active Substance: ISOPROTERENOL HYDROCHLORIDE
     Indication: Product used for unknown indication
     Dosage: UNK
     Route: 065
     Dates: start: 20200711, end: 20200713
  76. LORAZEPAM [Suspect]
     Active Substance: LORAZEPAM
     Indication: Anxiolytic therapy
     Dosage: 10 MG, QD (2.5 MILLIGRAM, QID)
     Route: 048
     Dates: start: 20200726, end: 20200727
  77. LORAZEPAM [Suspect]
     Active Substance: LORAZEPAM
     Dosage: 10 MG, QD
     Route: 048
     Dates: start: 20200726, end: 20200727
  78. LORAZEPAM [Suspect]
     Active Substance: LORAZEPAM
     Dosage: 10 MG, QD
     Route: 048
  79. LORAZEPAM [Suspect]
     Active Substance: LORAZEPAM
     Dosage: 40 MG, QD
     Route: 048
     Dates: start: 20200726, end: 20200727
  80. LORAZEPAM [Suspect]
     Active Substance: LORAZEPAM
     Dosage: 10 MG, QD
     Route: 048
  81. POLYETHYLENE GLYCOLS [Suspect]
     Active Substance: POLYETHYLENE GLYCOLS
     Indication: Constipation
     Dosage: 4 DOSAGE FORM, QD (2 DOSAGE FORM, BID)
     Route: 048
     Dates: start: 20200713, end: 20200715
  82. POLYETHYLENE GLYCOLS [Suspect]
     Active Substance: POLYETHYLENE GLYCOLS
     Dosage: 16 DOSAGE FORM
     Route: 048
  83. POLYETHYLENE GLYCOLS [Suspect]
     Active Substance: POLYETHYLENE GLYCOLS
     Dosage: 12 DOSAGE FORM, QD
     Route: 065
  84. INSULIN LISPRO [Suspect]
     Active Substance: INSULIN LISPRO
     Indication: Product used for unknown indication
     Dosage: 1 INTERNATIONAL UNIT
     Route: 042
     Dates: start: 20200709, end: 20200730
  85. LOVENOX [Suspect]
     Active Substance: ENOXAPARIN SODIUM
     Indication: Phlebitis
     Dosage: 180000 IU
     Route: 058
  86. LOVENOX [Suspect]
     Active Substance: ENOXAPARIN SODIUM
     Dosage: 6000 IU, QD
     Route: 058
     Dates: start: 20200708, end: 20200807
  87. MORPHINE [Suspect]
     Active Substance: MORPHINE
     Indication: Product used for unknown indication
     Dosage: UNK
     Route: 065
  88. CLONIDINE [Suspect]
     Active Substance: CLONIDINE
     Indication: Hypertension
     Dosage: UNK UNK, QD
     Route: 042
     Dates: start: 20200717, end: 20200717
  89. IMODIUM [Suspect]
     Active Substance: LOPERAMIDE HYDROCHLORIDE
     Indication: Diarrhoea
     Dosage: 4 MG, QD
     Route: 048
     Dates: start: 20200804, end: 20200804
  90. PROPOFOL [Suspect]
     Active Substance: PROPOFOL
     Indication: Sedation
     Dosage: 150 MG, QH
     Route: 042
     Dates: start: 20200709, end: 20200720
  91. DIAZEPAM [Suspect]
     Active Substance: DIAZEPAM
     Indication: Product used for unknown indication
     Dosage: 746.35 MG
     Route: 065
  92. ISOSORBIDE DINITRATE [Suspect]
     Active Substance: ISOSORBIDE DINITRATE
     Indication: Product used for unknown indication
     Dosage: UNK
     Route: 065
     Dates: start: 20200714, end: 20200720
  93. NOREPINEPHRINE [Suspect]
     Active Substance: NOREPINEPHRINE
     Indication: Sedation
     Dosage: 8 MG, QD
     Route: 042
     Dates: start: 20200709, end: 20200712
  94. NOREPINEPHRINE [Suspect]
     Active Substance: NOREPINEPHRINE
     Dosage: 0.8 MG, QH (Q1HR)
     Route: 042
     Dates: start: 20200709, end: 20200712
  95. SPIRAMYCIN [Suspect]
     Active Substance: SPIRAMYCIN
     Indication: Pneumonia
     Dosage: 9 IU, QD
     Route: 042
     Dates: start: 20200708, end: 20200715
  96. METHYLPREDNISOLONE [Suspect]
     Active Substance: METHYLPREDNISOLONE
     Indication: Acute respiratory distress syndrome
     Dosage: 1800 MG, QW
     Route: 042
  97. METHYLPREDNISOLONE [Suspect]
     Active Substance: METHYLPREDNISOLONE
     Dosage: 1200 MG, QD
     Route: 042
     Dates: start: 20200708, end: 20200723
  98. METHYLPREDNISOLONE [Suspect]
     Active Substance: METHYLPREDNISOLONE
     Dosage: 120 MG, QD
     Route: 042
     Dates: start: 20200708, end: 20200723
  99. METHYLPREDNISOLONE [Suspect]
     Active Substance: METHYLPREDNISOLONE
     Dosage: 1200 MG, QD
     Route: 042
  100. HYDROXYZINE [Suspect]
     Active Substance: HYDROXYZINE HYDROCHLORIDE
     Indication: Product used for unknown indication
     Dosage: UNK
     Route: 065
  101. CLONIDINE [Suspect]
     Active Substance: CLONIDINE
     Indication: Hypertension
     Dosage: UNK UNK, QD
     Route: 042
     Dates: start: 20200717, end: 20200717
  102. THIAMINE HYDROCHLORIDE [Suspect]
     Active Substance: THIAMINE HYDROCHLORIDE
     Indication: Product used for unknown indication
     Dosage: UNK
     Route: 065
  103. ENOXAPARIN SODIUM [Suspect]
     Active Substance: ENOXAPARIN SODIUM
     Indication: Phlebitis
     Dosage: 6000 IU
     Route: 058
     Dates: start: 20200708, end: 20200807
  104. ENOXAPARIN SODIUM [Suspect]
     Active Substance: ENOXAPARIN SODIUM
     Dosage: 180000 IU
     Route: 058
  105. ENOXAPARIN SODIUM [Suspect]
     Active Substance: ENOXAPARIN SODIUM
     Dosage: 6000 IU
     Route: 058
  106. AMIODARONE [Suspect]
     Active Substance: AMIODARONE
     Indication: Atrial fibrillation
     Dosage: 907.2 MG
     Route: 042
     Dates: start: 20200725, end: 20200727
  107. AMIODARONE [Suspect]
     Active Substance: AMIODARONE
     Dosage: 1814.4 MG
     Route: 042
     Dates: start: 20200725, end: 20200727
  108. ISOPROTERENOL HYDROCHLORIDE [Suspect]
     Active Substance: ISOPROTERENOL HYDROCHLORIDE
     Indication: Product used for unknown indication
     Dosage: UNK
     Route: 065
     Dates: start: 20200711, end: 20210713
  109. POTASSIUM CHLORIDE [Suspect]
     Active Substance: POTASSIUM CHLORIDE
     Indication: Product used for unknown indication
     Dosage: UNK
     Route: 065
  110. REMIFENTANIL HYDROCHLORIDE [Suspect]
     Active Substance: REMIFENTANIL HYDROCHLORIDE
     Indication: Sedation
     Dosage: 1 UG
     Route: 042
     Dates: start: 20200720, end: 20200730
  111. REMIFENTANIL HYDROCHLORIDE [Suspect]
     Active Substance: REMIFENTANIL HYDROCHLORIDE
     Dosage: 0.1 ?G/KG
     Route: 042
     Dates: start: 20200720, end: 20200730
  112. OXAZEPAM [Suspect]
     Active Substance: OXAZEPAM
     Indication: Anxiolytic therapy
     Dosage: 20 MG
     Route: 065
  113. OXAZEPAM [Suspect]
     Active Substance: OXAZEPAM
     Dosage: 10 MG, QD
     Route: 048
  114. OXAZEPAM [Suspect]
     Active Substance: OXAZEPAM
     Dosage: 10 MG, QD
     Route: 048
     Dates: start: 20200802, end: 20200804
  115. OXAZEPAM [Suspect]
     Active Substance: OXAZEPAM
     Dosage: 20 MG, QD
     Route: 048
  116. OXAZEPAM [Suspect]
     Active Substance: OXAZEPAM
     Dosage: 90 MG
     Route: 048
  117. OXAZEPAM [Suspect]
     Active Substance: OXAZEPAM
     Dosage: 10 MG, QD
     Route: 048
     Dates: start: 20200802, end: 20200804
  118. OXAZEPAM [Suspect]
     Active Substance: OXAZEPAM
     Dosage: 20 MG, QD
     Route: 048
  119. OXAZEPAM [Suspect]
     Active Substance: OXAZEPAM
     Dosage: 90 MG, QD
     Route: 048
  120. POTASSIUM CHLORIDE [Suspect]
     Active Substance: POTASSIUM CHLORIDE
     Indication: Product used for unknown indication
     Dosage: UNK
     Route: 065
  121. MIDAZOLAM HYDROCHLORIDE [Suspect]
     Active Substance: MIDAZOLAM HYDROCHLORIDE
     Indication: Sedation
     Dosage: 5 MG, QH
     Route: 042
     Dates: start: 20200709, end: 20200713
  122. MIDAZOLAM HYDROCHLORIDE [Suspect]
     Active Substance: MIDAZOLAM HYDROCHLORIDE
     Indication: Seizure
     Dosage: UNK
     Route: 042
  123. LORAZEPAM [Suspect]
     Active Substance: LORAZEPAM
     Indication: Anxiolytic therapy
     Dosage: 2.5 MG
     Route: 048
     Dates: start: 20200726, end: 20200727
  124. LORAZEPAM [Suspect]
     Active Substance: LORAZEPAM
     Dosage: 40 MG, QD
     Route: 048
     Dates: start: 20200726, end: 20200727
  125. LORAZEPAM [Suspect]
     Active Substance: LORAZEPAM
     Dosage: 10 MG, QD
     Route: 048
     Dates: start: 20200726, end: 20200727
  126. LORAZEPAM [Suspect]
     Active Substance: LORAZEPAM
     Dosage: 10 MG, QD
     Route: 048
     Dates: start: 20200726, end: 20200727
  127. LORAZEPAM [Suspect]
     Active Substance: LORAZEPAM
     Dosage: 10 MG, QD
     Route: 048
     Dates: start: 20200726, end: 20200727
  128. LORAZEPAM [Suspect]
     Active Substance: LORAZEPAM
     Dosage: 10 MG, QD
     Route: 048
     Dates: start: 20200726, end: 20200727
  129. URAPIDIL [Suspect]
     Active Substance: URAPIDIL
     Indication: Hypertension
     Dosage: 5 MG
     Route: 042
  130. URAPIDIL [Suspect]
     Active Substance: URAPIDIL
     Dosage: 120 MG
     Route: 042
  131. URAPIDIL [Suspect]
     Active Substance: URAPIDIL
     Dosage: 5 MG, QH (Q1H)
     Route: 042
     Dates: start: 20200709, end: 20200709
  132. MORPHINE SULFATE [Suspect]
     Active Substance: MORPHINE SULFATE
     Indication: Product used for unknown indication
     Dosage: UNK
     Route: 065
  133. CALCIUM GLUCONATE [Suspect]
     Active Substance: CALCIUM GLUCONATE
     Indication: Product used for unknown indication
     Dosage: UNK
     Route: 065
  134. CEFOTAXIME [Suspect]
     Active Substance: CEFOTAXIME SODIUM
     Indication: Pneumonia
     Dosage: 6 G
     Route: 042
  135. CEFOTAXIME [Suspect]
     Active Substance: CEFOTAXIME SODIUM
     Dosage: 42 G
     Route: 042
  136. CEFOTAXIME [Suspect]
     Active Substance: CEFOTAXIME SODIUM
     Dosage: 84 G, QD (42 GRAM, BID)
     Route: 042
     Dates: start: 20200708
  137. CEFOTAXIME [Suspect]
     Active Substance: CEFOTAXIME SODIUM
     Dosage: 6 G, QD
     Route: 042
     Dates: start: 20200708, end: 20200715
  138. CEFOTAXIME [Suspect]
     Active Substance: CEFOTAXIME SODIUM
     Dosage: 2 GRAM, TID
     Route: 042
     Dates: start: 20200708, end: 20200715
  139. CEFOTAXIME [Suspect]
     Active Substance: CEFOTAXIME SODIUM
     Dosage: 6 G
     Route: 042
  140. SUFENTANIL CITRATE [Suspect]
     Active Substance: SUFENTANIL CITRATE
     Indication: Sedation
     Dosage: 0.3 UG
     Route: 042
     Dates: start: 20200709, end: 20200717
  141. SUFENTANIL CITRATE [Suspect]
     Active Substance: SUFENTANIL CITRATE
     Indication: Gait disturbance
     Dosage: UNK
     Route: 042
     Dates: start: 20200709, end: 20200717
  142. HYDROXYUREA [Concomitant]
     Active Substance: HYDROXYUREA
     Indication: Product used for unknown indication
     Dosage: UNK
     Route: 065
  143. KARDEGIC [Concomitant]
     Active Substance: ASPIRIN DL-LYSINE
     Indication: Product used for unknown indication
     Dosage: UNK
     Route: 065
  144. ATORVASTATIN [Concomitant]
     Active Substance: ATORVASTATIN
     Indication: Product used for unknown indication
     Dosage: UNK
     Route: 065
  145. POTASSIUM GLUCONATE [Concomitant]
     Active Substance: POTASSIUM GLUCONATE
     Indication: Product used for unknown indication
     Dosage: UNK
     Route: 065

REACTIONS (1)
  - Toxic epidermal necrolysis [Fatal]

NARRATIVE: CASE EVENT DATE: 20200809
